FAERS Safety Report 4360923-9 (Version None)
Quarter: 2004Q2

REPORT INFORMATION
  Report Type: 
  Country: None (occurrence: None)
  Receive Date: 20040517
  Receipt Date: 20040430
  Transmission Date: 20050107
  Serious: Yes (Hospitalization)
  Sender: FDA-Public Use
  Company Number: ES-JNJFOC-20040502888

PATIENT
  Age: 66 Year
  Sex: Female

DRUGS (1)
  1. RISPERDAL [Suspect]
     Indication: DELIRIUM
     Dosage: 6 MG,   IN 1 DAY, ORAL
     Route: 048

REACTIONS (10)
  - ABDOMINAL PAIN [None]
  - BLOOD CALCIUM INCREASED [None]
  - CONSTIPATION [None]
  - DEPRESSED LEVEL OF CONSCIOUSNESS [None]
  - HYPERCALCAEMIA [None]
  - HYPOTENSION [None]
  - PYREXIA [None]
  - RENAL FAILURE [None]
  - URINARY RETENTION [None]
  - VOMITING [None]
